FAERS Safety Report 9599671 (Version 1)
Quarter: 2013Q4

REPORT INFORMATION
  Report Type: Spontaneous
  Country: US (occurrence: US)
  Receive Date: 20131004
  Receipt Date: 20131004
  Transmission Date: 20140711
  Serious: No
  Sender: FDA-Public Use
  Company Number: US-AMGEN-USASP2013030350

PATIENT
  Age: 55 Year
  Sex: Male

DRUGS (12)
  1. ENBREL [Suspect]
     Indication: PRODUCT USED FOR UNKNOWN INDICATION
     Dosage: 50 MG, QWK
     Route: 058
  2. LISINOPRIL [Concomitant]
     Dosage: 2.5 MG, UNK
  3. PROSCAR [Concomitant]
     Dosage: 5 MG, UNK
  4. FLOMAX                             /00889901/ [Concomitant]
     Dosage: 0.4 MG, UNK
  5. METHOTREXATE [Concomitant]
     Dosage: 2.5 MG, UNK
  6. FOLIC ACID [Concomitant]
     Dosage: UNK
  7. MULTIVITAMINS, PLAIN [Concomitant]
     Dosage: UNK
  8. ASPIRIN [Concomitant]
     Dosage: 81 MG, UNK
  9. NASONEX [Concomitant]
     Dosage: 50 MUG, UNK
  10. PROAIR HFA [Concomitant]
     Dosage: UNK
  11. CYMBALTA [Concomitant]
     Dosage: 20 MG, UNK
  12. FLEXERIL                           /00428402/ [Concomitant]
     Dosage: 5 MG, UNK

REACTIONS (1)
  - Nasopharyngitis [Unknown]
